FAERS Safety Report 12714381 (Version 1)
Quarter: 2016Q3

REPORT INFORMATION
  Report Type: Spontaneous
  Country: US (occurrence: US)
  Receive Date: 20160905
  Receipt Date: 20160905
  Transmission Date: 20161109
  Serious: No
  Sender: FDA-Public Use
  Company Number: US-JAZZ-2016-US-008861

PATIENT
  Age: 76 Year
  Sex: Male

DRUGS (17)
  1. XYREM [Suspect]
     Active Substance: SODIUM OXYBATE
     Dosage: 3.5 G, FIRST DOSE
     Route: 048
     Dates: start: 200906
  2. XYREM [Suspect]
     Active Substance: SODIUM OXYBATE
     Dosage: 1.5 G, THIRD DOSE
     Route: 048
     Dates: start: 200906
  3. XYREM [Suspect]
     Active Substance: SODIUM OXYBATE
     Dosage: 3.5 G, SECOND DOSE
     Route: 048
     Dates: start: 200906
  4. FLOMAX [Concomitant]
     Active Substance: TAMSULOSIN HYDROCHLORIDE
  5. ZOCOR [Concomitant]
     Active Substance: SIMVASTATIN
  6. MECLIZINE HCL [Concomitant]
     Active Substance: MECLIZINE HYDROCHLORIDE
  7. PEPCID [Concomitant]
     Active Substance: FAMOTIDINE
  8. XYREM [Suspect]
     Active Substance: SODIUM OXYBATE
     Indication: NARCOLEPSY
     Dosage: 4.25 G, BID
     Route: 048
     Dates: start: 200210, end: 200211
  9. ANUSOL-HC [Concomitant]
  10. COLACE [Concomitant]
     Active Substance: DOCUSATE SODIUM
  11. IBUPROFEN. [Concomitant]
     Active Substance: IBUPROFEN
  12. LISINOPRIL AND HYDROCHLOROTHIAZIDE [Concomitant]
     Active Substance: HYDROCHLOROTHIAZIDE\LISINOPRIL
  13. PROCTOCREAM-HC [Concomitant]
  14. PROVIGIL [Concomitant]
     Active Substance: MODAFINIL
  15. GLYCOLAX [Concomitant]
     Active Substance: POLYETHYLENE GLYCOL 3350
  16. XYREM [Suspect]
     Active Substance: SODIUM OXYBATE
     Indication: CATAPLEXY
     Dosage: DOSE ADJUSTMENTS
     Route: 048
  17. ALPRAZOLAM. [Concomitant]
     Active Substance: ALPRAZOLAM

REACTIONS (5)
  - Anxiety [Recovering/Resolving]
  - Therapeutic response unexpected [Unknown]
  - Labyrinthitis [Unknown]
  - Sleep terror [Unknown]
  - Sinusitis [Unknown]

NARRATIVE: CASE EVENT DATE: 201604
